FAERS Safety Report 11825856 (Version 1)
Quarter: 2015Q4

REPORT INFORMATION
  Report Type: Spontaneous
  Country: US (occurrence: US)
  Receive Date: 20151211
  Receipt Date: 20151211
  Transmission Date: 20160305
  Serious: Yes (Hospitalization)
  Sender: FDA-Public Use
  Company Number: US-ELI_LILLY_AND_COMPANY-US201512000133

PATIENT
  Sex: Female

DRUGS (2)
  1. CYMBALTA [Suspect]
     Active Substance: DULOXETINE HYDROCHLORIDE
     Indication: DEPRESSED MOOD
     Dosage: 2 DF, QD
     Route: 065
     Dates: start: 20151113, end: 20151127
  2. CYMBALTA [Suspect]
     Active Substance: DULOXETINE HYDROCHLORIDE
     Indication: PAIN
     Dosage: 1 DF, QD
     Route: 065
     Dates: start: 20151030

REACTIONS (5)
  - Nasopharyngitis [Unknown]
  - Asthenia [Unknown]
  - Memory impairment [Unknown]
  - Tremor [Unknown]
  - Tachyphrenia [Unknown]
